FAERS Safety Report 5360827-9 (Version None)
Quarter: 2007Q2

REPORT INFORMATION
  Report Type: 
  Country: None (occurrence: None)
  Receive Date: 20070618
  Receipt Date: 20070618
  Transmission Date: 20071010
  Serious: Yes (Death, Hospitalization)
  Sender: FDA-Public Use
  Company Number: DE-SHR-DE-2007-020582

PATIENT
  Sex: Male
  Weight: 80 kg

DRUGS (3)
  1. CAMPATH [Suspect]
     Dosage: 30 MG/D, UNK
     Route: 058
     Dates: start: 20040801, end: 20040811
  2. ACETAMINOPHEN [Concomitant]
  3. TAVEGIL                                 /GFR/ [Concomitant]

REACTIONS (3)
  - DEATH [None]
  - RENAL FAILURE [None]
  - TUMOUR LYSIS SYNDROME [None]
